FAERS Safety Report 20751010 (Version 2)
Quarter: 2022Q3

REPORT INFORMATION
  Report Type: Other
  Country: KR (occurrence: None)
  Receive Date: 20220426
  Receipt Date: 20220722
  Transmission Date: 20221026
  Serious: Yes (Hospitalization)
  Sender: FDA-Public Use
  Company Number: KR-ROCHE-3081004

PATIENT
  Age: 68 Year
  Sex: Male

DRUGS (11)
  1. ATEZOLIZUMAB [Suspect]
     Active Substance: ATEZOLIZUMAB
     Indication: Hepatocellular carcinoma
     Dosage: NEXT DOSES ON 03/FEB/2021, 24/FEB/2021, 17/MAR/2021, 07/APR/2021, 28/APR/2021, 20/MAY/2021, 10/JUN/2
     Route: 041
     Dates: start: 20210112
  2. BEVACIZUMAB [Suspect]
     Active Substance: BEVACIZUMAB
     Indication: Hepatocellular carcinoma
     Dosage: NEXT DOSES ON 03/FEB/2021, 24/FEB/2021, 17/MAR/2021, 07/APR/2021, 28/APR/2021, 20/MAY/2021, 10/JUN/2
     Route: 042
     Dates: start: 20210112
  3. LOPAINE [Concomitant]
  4. ULTRACET ER SEMI [Concomitant]
  5. MYPOL (SOUTH KOREA) [Concomitant]
  6. URSODIOL [Concomitant]
     Active Substance: URSODIOL
  7. GODEX (SOUTH KOREA) [Concomitant]
  8. UNIPITOR [Concomitant]
  9. TENELIA M SR [Concomitant]
  10. LACSTAR CAP [Concomitant]
  11. TRIMEBUTINE [Concomitant]
     Active Substance: TRIMEBUTINE

REACTIONS (3)
  - Alanine aminotransferase increased [Recovering/Resolving]
  - Aspartate aminotransferase increased [Recovering/Resolving]
  - Hyperlipidaemia [Recovering/Resolving]

NARRATIVE: CASE EVENT DATE: 20210721
